FAERS Safety Report 8831553 (Version 5)
Quarter: 2013Q2

REPORT INFORMATION
  Report Type: Report from Study
  Country: JP (occurrence: JP)
  Receive Date: 20121009
  Receipt Date: 20130627
  Transmission Date: 20140414
  Serious: Yes (Other)
  Sender: FDA-Public Use
  Company Number: JP-JNJFOC-20121003387

PATIENT
  Age: 50 Year
  Sex: Female
  Weight: 102 kg

DRUGS (9)
  1. STELARA [Suspect]
     Indication: PSORIASIS
     Dosage: 4 DOSES TOTAL
     Route: 058
     Dates: start: 20111018
  2. STELARA [Suspect]
     Indication: PSORIASIS
     Route: 058
     Dates: start: 20110913
  3. STELARA [Suspect]
     Indication: PSORIASIS
     Route: 058
     Dates: start: 20120417
  4. STELARA [Suspect]
     Indication: PSORIASIS
     Route: 058
     Dates: start: 20120717
  5. STELARA [Suspect]
     Indication: PSORIASIS
     Route: 058
     Dates: start: 20120117
  6. STELARA [Suspect]
     Indication: PSORIASIS
     Route: 058
     Dates: start: 20120925
  7. DOVONEX [Concomitant]
     Indication: PSORIASIS
     Route: 061
     Dates: start: 20101020
  8. ANTEBATE [Concomitant]
     Indication: PSORIASIS
     Route: 061
     Dates: start: 20101020
  9. ALESION [Concomitant]
     Indication: PSORIASIS
     Route: 048
     Dates: start: 20101020

REACTIONS (1)
  - Interstitial lung disease [Recovered/Resolved]
